FAERS Safety Report 8537133-4 (Version None)
Quarter: 2012Q3

REPORT INFORMATION
  Report Type: 
  Country: None (occurrence: None)
  Receive Date: 20120725
  Receipt Date: 20120724
  Transmission Date: 20120928
  Serious: Yes (Life-Threatening)
  Sender: FDA-Public Use
  Company Number: HR-BAYER-2012-073868

PATIENT
  Age: 63 Year
  Sex: Female

DRUGS (1)
  1. AVELOX [Suspect]
     Indication: PNEUMONIA
     Dosage: 400 MG, ONCE
     Route: 048
     Dates: start: 20120601, end: 20120601

REACTIONS (4)
  - SWOLLEN TONGUE [None]
  - OROPHARYNGEAL PAIN [None]
  - ANGIOEDEMA [None]
  - LIP SWELLING [None]
